FAERS Safety Report 7870993-9 (Version None)
Quarter: 2011Q4

REPORT INFORMATION
  Report Type: 
  Country: None (occurrence: None)
  Receive Date: 20111029
  Receipt Date: 20110222
  Transmission Date: 20120403
  Serious: No
  Sender: FDA-Public Use
  Company Number: US-AMGEN-USASP2011010281

PATIENT
  Age: 58 Year
  Sex: Female

DRUGS (12)
  1. CELEBREX [Concomitant]
     Dosage: 20 MG, BID
     Dates: start: 20020101
  2. LISINOPRIL [Concomitant]
     Dosage: 20 MG, QD
     Dates: start: 20090301
  3. METFORMIN HCL [Concomitant]
     Dosage: 500 MG, UNK
     Dates: start: 20100901
  4. METHOTREXATE [Concomitant]
     Dosage: 25 MG, QWK
     Dates: start: 20020801
  5. HYDROXYCHLOROQUINE SULFATE [Concomitant]
     Dosage: 200 MG, BID
     Dates: start: 20021101
  6. FUROSEMIDE [Concomitant]
     Dosage: 40 MG, QD
     Dates: start: 20100501
  7. FOLIC ACID [Concomitant]
     Dosage: 1 MG, UNK
     Dates: start: 20020801
  8. CALCIUM CARBONATE [Concomitant]
     Dosage: 600 MG, BID
     Dates: start: 20020801
  9. MULTI-VITAMINS [Concomitant]
     Dosage: UNK
     Dates: start: 20020801
  10. ENBREL [Suspect]
     Indication: RHEUMATOID ARTHRITIS
     Dosage: 50 MG, QWK
     Dates: start: 20030301
  11. METAMOL                            /00020001/ [Concomitant]
     Dosage: 50 MG, QD
     Dates: start: 20011001
  12. VITAMIN D [Concomitant]
     Dosage: UNK UNK, QWK
     Dates: start: 20091001

REACTIONS (3)
  - TOOTH INFECTION [None]
  - TOOTHACHE [None]
  - TOOTH FRACTURE [None]
